FAERS Safety Report 24443343 (Version 1)
Quarter: 2024Q4

REPORT INFORMATION
  Report Type: Spontaneous
  Country: CA (occurrence: None)
  Receive Date: 20241016
  Receipt Date: 20241016
  Transmission Date: 20250115
  Serious: Yes (Other)
  Sender: ORION
  Company Number: CA-PFIZER INC-202400276131

PATIENT
  Age: 73 Year
  Sex: Male
  Weight: 109.77 kg

DRUGS (6)
  1. METHOTREXATE [Suspect]
     Active Substance: METHOTREXATE
     Indication: Ankylosing spondylitis
     Dates: start: 2000, end: 202304
  2. METHOTREXATE [Suspect]
     Active Substance: METHOTREXATE
     Dates: start: 202406
  3. ARAVA [Concomitant]
     Active Substance: LEFLUNOMIDE
     Dates: start: 202304
  4. FOLIC ACID [Concomitant]
     Active Substance: FOLIC ACID
     Dates: start: 2000
  5. HUMIRA [Concomitant]
     Active Substance: ADALIMUMAB
     Dates: start: 2000, end: 2001
  6. REMICADE [Concomitant]
     Active Substance: INFLIXIMAB
     Dates: start: 2017, end: 202304

REACTIONS (3)
  - Limb injury [Unknown]
  - Overdose [Unknown]
  - Product use in unapproved indication [Unknown]

NARRATIVE: CASE EVENT DATE: 20000101
